FAERS Safety Report 6856733-0 (Version None)
Quarter: 2010Q3

REPORT INFORMATION
  Report Type: 
  Country: None (occurrence: None)
  Receive Date: 20100719
  Receipt Date: 20100629
  Transmission Date: 20110219
  Serious: Yes (Hospitalization)
  Sender: FDA-Public Use
  Company Number: US-BAYER-201026596NA

PATIENT
  Age: 13 Year
  Sex: Female

DRUGS (1)
  1. BETAPACE [Suspect]
     Indication: SYNCOPE
     Dosage: TOTAL DAILY DOSE: 80 MG  UNIT DOSE: 40 MG
     Route: 048
     Dates: start: 20100624

REACTIONS (1)
  - VISION BLURRED [None]
